FAERS Safety Report 11391630 (Version 1)
Quarter: 2015Q3

REPORT INFORMATION
  Report Type: Spontaneous
  Country: US (occurrence: None)
  Receive Date: 20150814
  Receipt Date: 20150814
  Transmission Date: 20151125
  Serious: Yes (Hospitalization, Other)
  Sender: FDA-Public Use
  Company Number: ADR-2015-01538

PATIENT
  Age: 66 Year
  Sex: Male

DRUGS (1)
  1. BACLOFEN (ORAL) [Suspect]
     Active Substance: BACLOFEN
     Indication: MUSCLE SPASMS

REACTIONS (6)
  - Hyporeflexia [None]
  - Coma scale abnormal [None]
  - Haemodialysis [None]
  - Neurotoxicity [None]
  - Depressed level of consciousness [None]
  - Hypotonia [None]

NARRATIVE: CASE EVENT DATE: 20150101
